FAERS Safety Report 10914655 (Version 2)
Quarter: 2015Q1

REPORT INFORMATION
  Report Type: Spontaneous
  Country: JP (occurrence: JP)
  Receive Date: 20150313
  Receipt Date: 20150327
  Transmission Date: 20150721
  Serious: Yes (Life-Threatening, Other)
  Sender: FDA-Public Use
  Company Number: JP-ASTRAZENECA-2015SE23374

PATIENT
  Age: 64 Year
  Sex: Female

DRUGS (2)
  1. MEROPENEM. [Suspect]
     Active Substance: MEROPENEM
     Indication: INFLAMMATORY MARKER INCREASED
     Dosage: NON-AZ PRODUCT
     Route: 042
  2. MEROPENEM. [Suspect]
     Active Substance: MEROPENEM
     Indication: PYREXIA
     Dosage: NON-AZ PRODUCT
     Route: 042

REACTIONS (9)
  - Clostridium test positive [Unknown]
  - Inflammatory marker increased [Unknown]
  - Diarrhoea [Unknown]
  - Megacolon [Unknown]
  - Disseminated intravascular coagulation [Unknown]
  - Abdominal pain [Unknown]
  - Blood creatine phosphokinase increased [Unknown]
  - Pyrexia [Unknown]
  - Pseudomembranous colitis [Unknown]
